FAERS Safety Report 10486944 (Version 6)
Quarter: 2015Q2

REPORT INFORMATION
  Report Type: Spontaneous
  Country: US (occurrence: US)
  Receive Date: 20141001
  Receipt Date: 20150413
  Transmission Date: 20150821
  Serious: Yes (Disabling)
  Sender: FDA-Public Use
  Company Number: US-009507513-1409USA015014

PATIENT
  Sex: Male
  Weight: 60.32 kg

DRUGS (3)
  1. LIPITOR [Concomitant]
     Active Substance: ATORVASTATIN CALCIUM
     Indication: HYPERLIPIDAEMIA
     Dosage: 20 MG, QD
     Route: 048
     Dates: start: 20000323
  2. LIPITOR [Concomitant]
     Active Substance: ATORVASTATIN CALCIUM
     Indication: HYPERTRIGLYCERIDAEMIA
  3. PROPECIA [Suspect]
     Active Substance: FINASTERIDE
     Indication: ALOPECIA
     Dosage: 1 MG, QD
     Route: 048
     Dates: start: 20000217

REACTIONS (10)
  - Erectile dysfunction [Unknown]
  - Joint injury [Unknown]
  - Poor peripheral circulation [Unknown]
  - Back pain [Not Recovered/Not Resolved]
  - Headache [Unknown]
  - Haemorrhoid operation [Unknown]
  - Weight gain poor [Unknown]
  - Shoulder operation [Unknown]
  - Sexual dysfunction [Not Recovered/Not Resolved]
  - Osteoarthritis [Unknown]

NARRATIVE: CASE EVENT DATE: 20000706
